FAERS Safety Report 4402224-6 (Version None)
Quarter: 2004Q3

REPORT INFORMATION
  Report Type: 
  Country: None (occurrence: None)
  Receive Date: 20040720
  Receipt Date: 20040712
  Transmission Date: 20050211
  Serious: Yes (Life-Threatening)
  Sender: FDA-Public Use
  Company Number: CA-ROCHE-374255

PATIENT
  Age: 47 Year
  Sex: Male

DRUGS (5)
  1. VALIUM [Suspect]
     Indication: DRUG USE FOR UNKNOWN INDICATION
     Route: 048
  2. DURAGESIC [Suspect]
     Dosage: DOSE REPORTED AS 75 UG/HR
     Route: 062
     Dates: start: 20040512
  3. DURAGESIC [Suspect]
     Dosage: DOSE REPORTES AS 75 UG/HR
     Route: 062
  4. OXYCONTIN [Suspect]
     Indication: DRUG USE FOR UNKNOWN INDICATION
     Route: 065
  5. FLEXERIL [Suspect]
     Indication: DRUG USE FOR UNKNOWN INDICATION
     Route: 048

REACTIONS (2)
  - BRADYPNOEA [None]
  - PAROSMIA [None]
